FAERS Safety Report 4783012-8 (Version None)
Quarter: 2005Q3

REPORT INFORMATION
  Report Type: 
  Country: None (occurrence: None)
  Receive Date: 20050929
  Receipt Date: 20050919
  Transmission Date: 20060218
  Serious: Yes (Hospitalization)
  Sender: FDA-Public Use
  Company Number: ES-SP-2005-01874

PATIENT
  Age: 70 Year
  Sex: Male

DRUGS (3)
  1. BCG  THERAPEUTICS [Suspect]
     Indication: BLADDER CANCER
     Route: 043
  2. BCG  THERAPEUTICS [Suspect]
     Route: 043
  3. GLIBENCLAMIDE [Concomitant]

REACTIONS (4)
  - CEREBRAL INFARCTION [None]
  - HENOCH-SCHONLEIN PURPURA [None]
  - LEUKOCYTOCLASTIC VASCULITIS [None]
  - PYREXIA [None]
